FAERS Safety Report 4938323-X (Version None)
Quarter: 2006Q1

REPORT INFORMATION
  Report Type: 
  Country: None (occurrence: None)
  Receive Date: 20060309
  Receipt Date: 20051220
  Transmission Date: 20060701
  Serious: Yes (Death, Disabling, Other)
  Sender: FDA-Public Use
  Company Number: US-MERCK-0512USA03323

PATIENT
  Age: 35 Year
  Sex: Male
  Weight: 123 kg

DRUGS (3)
  1. VIOXX [Suspect]
     Indication: BACK PAIN
     Route: 048
     Dates: start: 20000214, end: 20040118
  2. VIOXX [Suspect]
     Indication: ARTHRALGIA
     Route: 048
     Dates: start: 20000214, end: 20040118
  3. ALEVE [Concomitant]
     Route: 065

REACTIONS (8)
  - ARTERIOSCLEROSIS [None]
  - BACK INJURY [None]
  - BACK PAIN [None]
  - HYPERTENSION [None]
  - INTERVERTEBRAL DISC PROTRUSION [None]
  - MENISCUS LESION [None]
  - MUSCLE SPASMS [None]
  - MYOCARDIAL INFARCTION [None]
